FAERS Safety Report 6784948-9 (Version None)
Quarter: 2010Q2

REPORT INFORMATION
  Report Type: 
  Country: None (occurrence: None)
  Receive Date: 20100618
  Receipt Date: 20100602
  Transmission Date: 20101027
  Serious: Yes (Hospitalization)
  Sender: FDA-Public Use
  Company Number: GRP10000051

PATIENT
  Age: 71 Year
  Sex: Female
  Weight: 78 kg

DRUGS (4)
  1. ACTONEL [Suspect]
     Indication: OSTEOPOROSIS
     Dosage: 35 MG, 1/WEEK, ORAL
     Route: 048
     Dates: start: 20080101, end: 20100505
  2. FALITHROM (PHENPROCOUMON) [Suspect]
     Indication: ATRIAL FIBRILLATION
     Dosage: 16.5 MG, 1/WEEK, ORAL; 15 MG, 1/WEEK, ORAL
     Route: 048
     Dates: start: 20091203, end: 20100415
  3. FALITHROM (PHENPROCOUMON) [Suspect]
     Indication: ATRIAL FIBRILLATION
     Dosage: 16.5 MG, 1/WEEK, ORAL; 15 MG, 1/WEEK, ORAL
     Route: 048
     Dates: start: 20100416, end: 20100504
  4. BISOPROLOL FUMARATE [Suspect]
     Indication: ATRIAL FIBRILLATION
     Dosage: 2.5 MG, ORAL
     Route: 048
     Dates: start: 20091203

REACTIONS (8)
  - ACUTE HEPATIC FAILURE [None]
  - ATRIAL FIBRILLATION [None]
  - DECREASED ACTIVITY [None]
  - GENERAL PHYSICAL CONDITION ABNORMAL [None]
  - HEART RATE INCREASED [None]
  - HEPATIC CYST [None]
  - HEPATITIS [None]
  - OVERDOSE [None]
